FAERS Safety Report 4982922-6 (Version None)
Quarter: 2006Q2

REPORT INFORMATION
  Report Type: 
  Country: None (occurrence: None)
  Receive Date: 20060420
  Receipt Date: 20060412
  Transmission Date: 20061013
  Serious: Yes (Death, Hospitalization)
  Sender: FDA-Public Use
  Company Number: A001-002-006844

PATIENT
  Age: 68 Year
  Sex: Female

DRUGS (2)
  1. ARICEPT [Suspect]
     Indication: AMNESIA
     Dosage: 5 MG, 1 IN 1 D, ORAL
     Route: 048
     Dates: start: 20040501, end: 20040501
  2. GLUCOPHAGE [Concomitant]

REACTIONS (3)
  - COMA [None]
  - DYSPNOEA [None]
  - FALL [None]
